FAERS Safety Report 6195179-8 (Version None)
Quarter: 2009Q2

REPORT INFORMATION
  Report Type: 
  Country: None (occurrence: None)
  Receive Date: 20090515
  Receipt Date: 20090504
  Transmission Date: 20091009
  Serious: No
  Sender: FDA-Public Use
  Company Number: SPI200900160

PATIENT
  Sex: Female

DRUGS (1)
  1. AMITIZA [Suspect]
     Indication: IRRITABLE BOWEL SYNDROME
     Dosage: 24 MCG, BID, ORAL
     Route: 048

REACTIONS (3)
  - DYSPNOEA [None]
  - MALAISE [None]
  - NAUSEA [None]
